FAERS Safety Report 23670943 (Version 2)
Quarter: 2024Q4

REPORT INFORMATION
  Report Type: Spontaneous
  Country: US (occurrence: US)
  Receive Date: 20240326
  Receipt Date: 20241115
  Transmission Date: 20250114
  Serious: No
  Sender: ROCHE
  Company Number: US-ROCHE-3497779

PATIENT
  Age: 45 Year
  Sex: Female

DRUGS (2)
  1. EVRYSDI [Suspect]
     Active Substance: RISDIPLAM
     Indication: Spinal muscular atrophy
     Route: 048
     Dates: start: 20220323
  2. DEVICE\INSULIN NOS [Concomitant]
     Active Substance: DEVICE\INSULIN NOS
     Indication: Glycosylated haemoglobin increased
     Dates: start: 202409

REACTIONS (3)
  - Accident [Recovered/Resolved]
  - Skin abrasion [Unknown]
  - Weight increased [Unknown]

NARRATIVE: CASE EVENT DATE: 20240119
